FAERS Safety Report 6908206-4 (Version None)
Quarter: 2010Q3

REPORT INFORMATION
  Report Type: 
  Country: None (occurrence: None)
  Receive Date: 20100708
  Receipt Date: 20090703
  Transmission Date: 20110219
  Serious: Yes (Other)
  Sender: FDA-Public Use
  Company Number: 2008000815

PATIENT
  Age: 64 Year
  Sex: Female
  Weight: 53.5 kg

DRUGS (4)
  1. CHANTIX [Suspect]
     Dosage: 0.5 MG, 1X/DAY, ORAL
     Route: 048
     Dates: start: 20071221
  2. LIPITOR [Concomitant]
  3. LEXAPRO [Concomitant]
  4. PREDNISOLONE ACETATE (PREDNISLONE ACETATE) [Concomitant]

REACTIONS (11)
  - ABNORMAL DREAMS [None]
  - DECREASED APPETITE [None]
  - FLUID INTAKE REDUCED [None]
  - INSOMNIA [None]
  - MALAISE [None]
  - NIGHTMARE [None]
  - PARANOIA [None]
  - READING DISORDER [None]
  - STRESS [None]
  - VISUAL ACUITY REDUCED [None]
  - WEIGHT DECREASED [None]
